FAERS Safety Report 4302597-9 (Version None)
Quarter: 2004Q1

REPORT INFORMATION
  Report Type: 
  Country: None (occurrence: None)
  Receive Date: 20040224
  Receipt Date: 20040212
  Transmission Date: 20041129
  Serious: Yes (Other)
  Sender: FDA-Public Use
  Company Number: JP-BRISTOL-MYERS SQUIBB COMPANY-12512406

PATIENT
  Age: 96 Year
  Sex: Female

DRUGS (12)
  1. GATIFLO [Suspect]
     Indication: BRONCHOPNEUMONIA
     Route: 048
     Dates: start: 20040114, end: 20040206
  2. LASIX [Concomitant]
     Route: 048
     Dates: start: 20040114
  3. ASPIRIN [Concomitant]
     Route: 048
     Dates: start: 20040114
  4. GASTER D [Concomitant]
     Route: 048
     Dates: start: 20040114
  5. RIZE [Concomitant]
     Route: 048
     Dates: start: 20040114
  6. LAC-B [Concomitant]
     Route: 048
     Dates: start: 20040114
  7. HOKUNALIN [Concomitant]
     Route: 062
     Dates: start: 20040114
  8. TIENAM [Concomitant]
     Route: 041
     Dates: start: 20040114, end: 20040131
  9. AMINOFLUID [Concomitant]
     Route: 041
     Dates: start: 20040131
  10. HEPARIN [Concomitant]
     Route: 042
     Dates: start: 20040131
  11. VITAMIN B COMPLEX CAP [Concomitant]
     Route: 041
     Dates: start: 20040131
  12. ELECTROLYTES [Concomitant]
     Dosage: UNITS
     Route: 041
     Dates: start: 20040131

REACTIONS (3)
  - ATRIAL FIBRILLATION [None]
  - BLOOD PRESSURE DECREASED [None]
  - HYPERGLYCAEMIA [None]
